FAERS Safety Report 16544310 (Version 1)
Quarter: 2019Q3

REPORT INFORMATION
  Report Type: Spontaneous
  Country: US (occurrence: US)
  Receive Date: 20190709
  Receipt Date: 20190709
  Transmission Date: 20191004
  Serious: No
  Sender: FDA-Public Use
  Company Number: US-C B FLEET CO INC-201904-US-001080

PATIENT
  Sex: Female

DRUGS (1)
  1. NIX COMPLETE MAXIMUM STRENGTH LICE ELIMINATION [Suspect]
     Active Substance: PERMETHRIN
     Indication: LICE INFESTATION
     Dosage: UNKNOWN DOSAGE
     Route: 061

REACTIONS (4)
  - Alopecia [Not Recovered/Not Resolved]
  - Skin irritation [Recovering/Resolving]
  - Rash erythematous [Recovering/Resolving]
  - Pain of skin [Not Recovered/Not Resolved]
